FAERS Safety Report 9234321 (Version 2)
Quarter: 2013Q2

REPORT INFORMATION
  Report Type: Report from Study
  Country: US (occurrence: US)
  Receive Date: 20130416
  Receipt Date: 20130503
  Transmission Date: 20140414
  Serious: Yes (Hospitalization)
  Sender: FDA-Public Use
  Company Number: US-MYLANLABS-2013S1007662

PATIENT
  Age: 46 Year
  Sex: Female
  Weight: 73 kg

DRUGS (17)
  1. METOPROLOL TARTRATE TABLETS, USP [Suspect]
     Indication: HYPERTENSION
     Route: 048
     Dates: start: 20130307
  2. METOPROLOL TARTRATE TABLETS, USP [Suspect]
     Indication: HYPERTENSION
     Route: 048
     Dates: start: 20130307
  3. NORVASC [Concomitant]
     Dosage: HYPERTENSION
     Route: 048
     Dates: start: 20130304
  4. CLONIDINE [Concomitant]
     Indication: HYPERTENSION
     Route: 048
     Dates: start: 20130228
  5. LEVOTHYROXINE [Concomitant]
     Indication: HYPOTHYROIDISM
     Route: 048
     Dates: start: 20110101
  6. CLARITIN /00917501/ [Concomitant]
     Indication: ILL-DEFINED DISORDER
     Route: 048
     Dates: start: 20100101
  7. CELLCEPT /01275102/ [Concomitant]
     Indication: IMMUNOSUPPRESSION
     Route: 048
     Dates: start: 20130214
  8. NYSTATIN [Concomitant]
     Indication: INFECTION PROPHYLAXIS
     Dosage: SWISH AND SWALLOW
     Route: 048
     Dates: start: 20130214
  9. OMEPRAZOLE [Concomitant]
     Indication: PROPHYLAXIS
     Route: 048
     Dates: start: 19971201
  10. PREDNISONE [Concomitant]
     Indication: IMMUNOSUPPRESSION
     Route: 048
     Dates: start: 20130225
  11. SEPTRA [Concomitant]
     Indication: INFECTION PROPHYLAXIS
     Dosage: 0.4286 DOSAGE FORMS (1 DOSAGE FORMS M-W-F)
     Route: 048
     Dates: start: 201302
  12. VALCYTE [Concomitant]
     Indication: PROPHYLAXIS
     Route: 048
     Dates: start: 20120214
  13. COUMADIN [Concomitant]
     Indication: THROMBOSIS PROPHYLAXIS
     Route: 048
     Dates: start: 20120101
  14. PLAVIX [Concomitant]
     Indication: ARTERIAL STENT INSERTION
     Route: 048
     Dates: start: 20070801
  15. FLONASE [Concomitant]
     Indication: ILL-DEFINED DISORDER
     Route: 045
     Dates: start: 20100101
  16. SINGULAR [Concomitant]
     Indication: ILL-DEFINED DISORDER
     Route: 048
     Dates: start: 20100101
  17. XANAX [Concomitant]
     Indication: ANXIETY
     Route: 048
     Dates: start: 20100701

REACTIONS (1)
  - Urine output decreased [Recovered/Resolved]
